FAERS Safety Report 9181169 (Version 2)
Quarter: 2013Q1

REPORT INFORMATION
  Report Type: Spontaneous
  Country: US (occurrence: US)
  Receive Date: 20130322
  Receipt Date: 20130322
  Transmission Date: 20140127
  Serious: No
  Sender: FDA-Public Use
  Company Number: US-MYLANLABS-2012S1012945

PATIENT
  Age: 63 Year
  Sex: Male

DRUGS (6)
  1. EMSAM [Suspect]
     Indication: DEPRESSION
     Dosage: CHANGES Q.D.
     Route: 062
     Dates: start: 201205, end: 20120619
  2. TRAZODONE [Suspect]
     Indication: INSOMNIA
     Route: 048
     Dates: start: 201205
  3. EMSAM [Suspect]
     Indication: DEPRESSION
     Dosage: CHANGES Q.D.
     Route: 062
     Dates: start: 20120619, end: 20120625
  4. LEVETIRACETAM [Concomitant]
     Indication: MOOD ALTERED
     Dosage: USING 500MG TABLETS
  5. XANAX [Concomitant]
     Indication: ANXIETY
  6. PROPRANOLOL [Concomitant]
     Indication: BLOOD PRESSURE INCREASED

REACTIONS (2)
  - Dizziness [Not Recovered/Not Resolved]
  - Tremor [Not Recovered/Not Resolved]
